FAERS Safety Report 4611002-4 (Version None)
Quarter: 2005Q2

REPORT INFORMATION
  Report Type: 
  Country: None (occurrence: None)
  Receive Date: 20050303
  Receipt Date: 20041115
  Transmission Date: 20051028
  Serious: No
  Sender: FDA-Public Use
  Company Number: 702387

PATIENT
  Age: 77 Year
  Sex: Male
  Weight: 90.7194 kg

DRUGS (24)
  1. AMEVIVE [Suspect]
     Indication: PSORIASIS
     Dosage: IM
     Route: 030
     Dates: start: 20041109, end: 20041116
  2. FUROSEMIDE [Concomitant]
  3. ISOSORBIDE [Concomitant]
  4. NEURONTIN [Concomitant]
  5. TRAZADONE [Concomitant]
  6. NITROGLYCERIN [Concomitant]
  7. FLOMAX [Concomitant]
  8. DETROL [Concomitant]
  9. PREVACID [Concomitant]
  10. ZANTAC [Concomitant]
  11. LIPITOR [Concomitant]
  12. FIBERON [Concomitant]
  13. GLUCOSAMINE [Concomitant]
  14. MULTI-VITAMINS [Concomitant]
  15. VITAMIN C [Concomitant]
  16. DIGESTIVE SUPPLEMENTS (NOS) [Concomitant]
  17. ASPIRIN [Concomitant]
  18. FUROSEMIDE [Concomitant]
  19. TRAMADOL HCL [Concomitant]
  20. Z-PAC [Concomitant]
  21. ZONALON [Concomitant]
  22. TRIAMCINOLONE [Concomitant]
  23. DOVONEX [Concomitant]
  24. BEXTRA [Concomitant]

REACTIONS (14)
  - ACTINIC KERATOSIS [None]
  - CHEST PAIN [None]
  - DEPRESSION [None]
  - DIZZINESS [None]
  - DYSPHAGIA [None]
  - ERUCTATION [None]
  - HEADACHE [None]
  - INJECTION SITE ERYTHEMA [None]
  - JOINT SWELLING [None]
  - NEUROPATHY PERIPHERAL [None]
  - PSORIASIS [None]
  - PSORIATIC ARTHROPATHY [None]
  - THROAT TIGHTNESS [None]
  - VISION BLURRED [None]
